FAERS Safety Report 19524465 (Version 1)
Quarter: 2021Q3

REPORT INFORMATION
  Report Type: Spontaneous
  Country: US (occurrence: US)
  Receive Date: 20210712
  Receipt Date: 20210712
  Transmission Date: 20211014
  Serious: No
  Sender: FDA-Public Use
  Company Number: None

PATIENT
  Sex: Female

DRUGS (8)
  1. VELETRI [Concomitant]
     Active Substance: EPOPROSTENOL
  2. SILDENAFIL. [Concomitant]
     Active Substance: SILDENAFIL
  3. SPIRONOLACTONE. [Concomitant]
     Active Substance: SPIRONOLACTONE
  4. LETAIRIS [Concomitant]
     Active Substance: AMBRISENTAN
  5. PLAQUENIL [Concomitant]
     Active Substance: HYDROXYCHLOROQUINE SULFATE
  6. HYDROXYCHLOROQUINE SULFAT [Concomitant]
     Active Substance: HYDROXYCHLOROQUINE SULFATE
  7. BUMETANIDE. [Concomitant]
     Active Substance: BUMETANIDE
  8. AMBRISENTAN [Suspect]
     Active Substance: AMBRISENTAN
     Indication: PULMONARY HYPERTENSION
     Route: 048

REACTIONS (3)
  - Headache [None]
  - Diarrhoea [None]
  - Pain in jaw [None]
